FAERS Safety Report 4497866-6 (Version None)
Quarter: 2004Q4

REPORT INFORMATION
  Report Type: 
  Country: None (occurrence: None)
  Receive Date: 20041110
  Receipt Date: 20041108
  Transmission Date: 20050328
  Serious: Yes (Other)
  Sender: FDA-Public Use
  Company Number: 115444

PATIENT
  Age: 46 Year
  Sex: Female

DRUGS (2)
  1. VIANI FORTE DISKUS [Suspect]
     Dosage: 2PUFF PER DAY
     Route: 055
  2. SPIRIVA [Concomitant]
     Dosage: 2PUFF PER DAY
     Route: 065

REACTIONS (1)
  - HEPATIC ENZYME INCREASED [None]
